FAERS Safety Report 6738645-6 (Version None)
Quarter: 2010Q2

REPORT INFORMATION
  Report Type: 
  Country: None (occurrence: None)
  Receive Date: 20100520
  Receipt Date: 20100512
  Transmission Date: 20101027
  Serious: Yes (Death, Hospitalization)
  Sender: FDA-Public Use
  Company Number: US-000053

PATIENT
  Sex: Male
  Weight: 25.855 kg

DRUGS (7)
  1. KUVAN [Suspect]
     Indication: METABOLIC DISORDER
     Dosage: (500 MG QD OTHER)
     Dates: start: 20090201, end: 20100225
  2. KUVAN [Suspect]
     Indication: OFF LABEL USE
     Dosage: (500 MG QD OTHER)
     Dates: start: 20090201, end: 20100225
  3. SINEMET [Concomitant]
  4. ARTANE [Concomitant]
  5. L-5HPT [Concomitant]
  6. PEDIASURE [Concomitant]
  7. L-DOPA [Concomitant]

REACTIONS (8)
  - CONDITION AGGRAVATED [None]
  - DISEASE PROGRESSION [None]
  - EATING DISORDER [None]
  - FLATULENCE [None]
  - MULTIPLE ALLERGIES [None]
  - NERVOUS SYSTEM DISORDER [None]
  - RESPIRATORY DISORDER [None]
  - RETCHING [None]
